FAERS Safety Report 5137236-0 (Version None)
Quarter: 2006Q4

REPORT INFORMATION
  Report Type: 
  Country: None (occurrence: None)
  Receive Date: 20061030
  Receipt Date: 20050923
  Transmission Date: 20070319
  Serious: Yes (Hospitalization)
  Sender: FDA-Public Use
  Company Number: US-GLAXOSMITHKLINE-A0575683A

PATIENT
  Age: 48 Year
  Sex: Male

DRUGS (12)
  1. ADVAIR HFA [Suspect]
     Indication: ASTHMA
     Dosage: 1PUFF TWICE PER DAY
     Route: 055
  2. ADVAIR HFA [Suspect]
     Route: 055
  3. ALBUTEROL [Concomitant]
  4. PREVACID [Concomitant]
  5. IMDUR [Concomitant]
  6. LOPRESSOR [Concomitant]
  7. LIPITOR [Concomitant]
  8. TRICOR [Concomitant]
  9. ASPIRIN [Concomitant]
  10. LORAZEPAM [Concomitant]
  11. NITROGLYCERIN [Concomitant]
  12. DARVOCET [Concomitant]

REACTIONS (5)
  - CHEST PAIN [None]
  - DRUG INEFFECTIVE [None]
  - DYSPNOEA [None]
  - MEDICATION ERROR [None]
  - PHARMACEUTICAL PRODUCT COMPLAINT [None]
